FAERS Safety Report 19948761 (Version 1)
Quarter: 2021Q4

REPORT INFORMATION
  Report Type: Spontaneous
  Country: CN (occurrence: CN)
  Receive Date: 20211012
  Receipt Date: 20211012
  Transmission Date: 20220303
  Serious: Yes (Hospitalization)
  Sender: FDA-Public Use
  Company Number: CN-BAXTER-2021BAX031589

PATIENT
  Age: 51 Year
  Sex: Male
  Weight: 62 kg

DRUGS (4)
  1. CYCLOPHOSPHAMIDE [Suspect]
     Active Substance: CYCLOPHOSPHAMIDE
     Indication: Acute lymphocytic leukaemia
     Dosage: CYCLOPHOSPHAMIDE 0.4G + 250ML 0.9% NS,  DAY 1-DAY 3, HYPER-CVD REGIMEN CHEMOTHERAPY
     Route: 041
     Dates: start: 20210827, end: 20210829
  2. SODIUM CHLORIDE [Suspect]
     Active Substance: SODIUM CHLORIDE
     Indication: Medication dilution
     Dosage: CYCLOPHOSPHAMIDE 0.4G + 250ML 0.9% NS,  DAY 1-DAY 3, HYPER-CVD REGIMEN CHEMOTHERAPY
     Route: 041
     Dates: start: 20210827, end: 20210829
  3. VINDESINE SULFATE [Suspect]
     Active Substance: VINDESINE SULFATE
     Indication: Acute lymphocytic leukaemia
     Dosage: DOSAGE FORM: LYOPHILIZED POWDER, HYPER-CVD REGIMEN CHEMOTHERAPY
     Route: 041
     Dates: start: 20210830, end: 20210906
  4. DEXAMETHASONE [Suspect]
     Active Substance: DEXAMETHASONE
     Indication: Acute lymphocytic leukaemia
     Dosage: DAY 1- DAY 4, DAY 11- DAY 14, HYPER-CVD REGIMEN CHEMOTHERAPY
     Route: 065
     Dates: start: 20210827

REACTIONS (1)
  - Myelosuppression [Unknown]

NARRATIVE: CASE EVENT DATE: 20210908
